FAERS Safety Report 5255503-7 (Version None)
Quarter: 2007Q1

REPORT INFORMATION
  Report Type: 
  Country: None (occurrence: None)
  Receive Date: 20070228
  Receipt Date: 20070220
  Transmission Date: 20070707
  Serious: Yes (Other)
  Sender: FDA-Public Use
  Company Number: GXKR2007AT01871

PATIENT
  Age: 21 Year
  Sex: Female

DRUGS (2)
  1. LORATADINE [Suspect]
     Indication: URTICARIA CHRONIC
     Dosage: 1 DF, QID, ORAL
     Route: 048
     Dates: start: 20060723
  2. SINGULAIR [Suspect]
     Indication: ASTHMA
     Dosage: 1 DF, QD, ORAL
     Route: 048
     Dates: start: 20060801

REACTIONS (18)
  - BURNING SENSATION [None]
  - CONDITION AGGRAVATED [None]
  - DEPERSONALISATION [None]
  - DEPRESSION [None]
  - DISSOCIATION [None]
  - DIZZINESS [None]
  - DRUG INTERACTION [None]
  - HALLUCINATION [None]
  - HYPERSENSITIVITY [None]
  - INTENTIONAL OVERDOSE [None]
  - MUSCLE SPASMS [None]
  - NERVOUS SYSTEM DISORDER [None]
  - PARAESTHESIA [None]
  - PRESCRIBED OVERDOSE [None]
  - SOMNOLENCE [None]
  - TINNITUS [None]
  - URTICARIA [None]
  - VISUAL ACUITY REDUCED [None]
